FAERS Safety Report 11944211 (Version 2)
Quarter: 2016Q1

REPORT INFORMATION
  Report Type: Spontaneous
  Country: JP (occurrence: JP)
  Receive Date: 20160125
  Receipt Date: 20160325
  Transmission Date: 20160526
  Serious: Yes (Life-Threatening, Hospitalization)
  Sender: FDA-Public Use
  Company Number: JP-ROCHE-1658407

PATIENT
  Age: 55 Year
  Sex: Male
  Weight: 62 kg

DRUGS (5)
  1. AVASTIN [Suspect]
     Active Substance: BEVACIZUMAB
     Indication: COLON CANCER
     Dosage: TREATMENT LINE: 1?COMPLETED TREATMENT CYCLE NUMBER: 10
     Route: 041
     Dates: start: 20150105
  2. XELODA [Suspect]
     Active Substance: CAPECITABINE
     Indication: RECTAL CANCER
     Dosage: 2 WEEKS ADMINISTRATION FOLLOWED BY 1 WEEK REST?COMPLETED TREATMENT CYCLE NUMBER: 10
     Route: 048
     Dates: start: 20150105
  3. ADEFURONIC [Concomitant]
     Active Substance: DICLOFENAC SODIUM
     Indication: CANCER PAIN
     Route: 048
     Dates: start: 20150105, end: 20151024
  4. OXALIPLATIN. [Concomitant]
     Active Substance: OXALIPLATIN
     Indication: RECTAL CANCER
     Dosage: COMPLETED TREATMENT CYCLE NUMBER: 10
     Route: 041
     Dates: start: 20150105
  5. OXYCONTIN [Concomitant]
     Active Substance: OXYCODONE HYDROCHLORIDE
     Indication: CANCER PAIN
     Route: 048
     Dates: start: 20150105

REACTIONS (5)
  - Gastrointestinal perforation [Recovered/Resolved]
  - Device related infection [Unknown]
  - Staphylococcal infection [Unknown]
  - Postoperative ileus [Recovered/Resolved]
  - Septic shock [Recovering/Resolving]

NARRATIVE: CASE EVENT DATE: 20151024
